FAERS Safety Report 4815123-2 (Version None)
Quarter: 2005Q4

REPORT INFORMATION
  Report Type: 
  Country: None (occurrence: None)
  Receive Date: 20051026
  Receipt Date: 20051007
  Transmission Date: 20060501
  Serious: Yes (Other)
  Sender: FDA-Public Use
  Company Number: GBS051018705

PATIENT
  Sex: Male

DRUGS (2)
  1. STRATTERA [Suspect]
     Indication: ATTENTION DEFICIT/HYPERACTIVITY DISORDER
  2. STRATTERA [Suspect]
     Indication: AUTISM SPECTRUM DISORDER

REACTIONS (5)
  - BITE [None]
  - INTENTIONAL SELF-INJURY [None]
  - SEDATION [None]
  - SELF ESTEEM DECREASED [None]
  - SUICIDAL IDEATION [None]
